FAERS Safety Report 13518905 (Version 1)
Quarter: 2017Q2

REPORT INFORMATION
  Report Type: Other
  Country: FR (occurrence: FR)
  Receive Date: 20170505
  Receipt Date: 20170505
  Transmission Date: 20170830
  Serious: Yes (Life-Threatening, Hospitalization)
  Sender: FDA-Public Use
  Company Number: FR-VALIDUS PHARMACEUTICALS LLC-FR-2017VAL000690

PATIENT
  Age: 90 Year
  Sex: Female

DRUGS (3)
  1. CODOLIPRANE [Suspect]
     Active Substance: ACETAMINOPHEN\CODEINE PHOSPHATE
     Indication: PRODUCT USED FOR UNKNOWN INDICATION
     Dosage: UNK
     Route: 048
     Dates: start: 201703, end: 20170316
  2. FUROSEMIDE. [Suspect]
     Active Substance: FUROSEMIDE
     Indication: PRODUCT USED FOR UNKNOWN INDICATION
     Dosage: UNK
     Route: 048
     Dates: start: 201703, end: 20170316
  3. CALCIUM CARBONATE. [Suspect]
     Active Substance: CALCIUM CARBONATE
     Indication: PRODUCT USED FOR UNKNOWN INDICATION
     Dosage: UNK
     Route: 048
     Dates: start: 201703, end: 20170316

REACTIONS (11)
  - Hypokalaemia [Recovered/Resolved]
  - Renal failure [Recovered/Resolved]
  - Electrocardiogram abnormal [Unknown]
  - Hypernatraemia [Recovered/Resolved]
  - Hypercalcaemia [Recovered/Resolved]
  - Disturbance in attention [Recovered/Resolved]
  - Bundle branch block left [Unknown]
  - Toxicity to various agents [Unknown]
  - Overdose [Unknown]
  - Metabolic alkalosis [Recovered/Resolved]
  - Liver injury [Recovered/Resolved]

NARRATIVE: CASE EVENT DATE: 20170315
